FAERS Safety Report 7005256-7 (Version None)
Quarter: 2010Q3

REPORT INFORMATION
  Report Type: 
  Country: None (occurrence: None)
  Receive Date: 20100921
  Receipt Date: 20100908
  Transmission Date: 20110219
  Serious: Yes (Other)
  Sender: FDA-Public Use
  Company Number: PHHY2010DE59760

PATIENT
  Sex: Female

DRUGS (5)
  1. DIOVAN HCT [Suspect]
     Indication: HYPERTENSION
     Dosage: 160 MG/12.5, ONCE DAY
  2. DIOVAN [Suspect]
     Indication: HYPERTENSION
  3. CARMEN [Concomitant]
  4. POTASSIUM [Concomitant]
     Indication: CARDIAC DISORDER
  5. MAGNESIUM [Concomitant]
     Indication: MUSCLE SPASMS
     Dosage: 300 MG, DAILY

REACTIONS (9)
  - ACNE [None]
  - CARDIAC DISORDER [None]
  - FIBROMYALGIA [None]
  - HEART RATE INCREASED [None]
  - MUSCLE SPASMS [None]
  - PRURITUS [None]
  - RASH [None]
  - SLEEP DISORDER [None]
  - WEIGHT INCREASED [None]
